FAERS Safety Report 5327810-0 (Version None)
Quarter: 2007Q2

REPORT INFORMATION
  Report Type: 
  Country: None (occurrence: None)
  Receive Date: 20070517
  Receipt Date: 20070507
  Transmission Date: 20071010
  Serious: Yes (Hospitalization)
  Sender: FDA-Public Use
  Company Number: US-JNJFOC-20070502116

PATIENT
  Sex: Female
  Weight: 74.84 kg

DRUGS (2)
  1. FENTANYL TRANSDERMAL SYSTEM [Suspect]
     Indication: PAIN
     Dosage: 100UG/HR PATCH AND 100UG/HR PATCH APPLIED TOGETHER
     Route: 062
  2. ACTIQ [Concomitant]
     Indication: PAIN
     Route: 048

REACTIONS (13)
  - AMNESIA [None]
  - APNOEA [None]
  - BLOOD TEST ABNORMAL [None]
  - CARDIAC DISORDER [None]
  - FALL [None]
  - LIVER FUNCTION TEST ABNORMAL [None]
  - LOSS OF CONSCIOUSNESS [None]
  - MASS [None]
  - OVERDOSE [None]
  - RENAL FAILURE [None]
  - VOMITING [None]
  - WHITE BLOOD CELL COUNT ABNORMAL [None]
  - WRONG TECHNIQUE IN DRUG USAGE PROCESS [None]
